FAERS Safety Report 20576209 (Version 2)
Quarter: 2022Q3

REPORT INFORMATION
  Report Type: Spontaneous
  Country: US (occurrence: US)
  Receive Date: 20220310
  Receipt Date: 20220728
  Transmission Date: 20221026
  Serious: Yes (Death, Other)
  Sender: FDA-Public Use
  Company Number: US-SA-SAC20220308001282

PATIENT
  Age: 63 Year
  Sex: Male

DRUGS (3)
  1. ZANTAC [Suspect]
     Active Substance: RANITIDINE HYDROCHLORIDE
     Indication: Dyspepsia
     Dosage: 150 MG, QD
     Route: 065
     Dates: start: 200501, end: 200901
  2. ZANTAC [Suspect]
     Active Substance: RANITIDINE HYDROCHLORIDE
     Indication: Erosive oesophagitis
  3. ZANTAC [Suspect]
     Active Substance: RANITIDINE HYDROCHLORIDE
     Indication: Gastrooesophageal reflux disease

REACTIONS (6)
  - Gastric cancer stage III [Fatal]
  - Gastrointestinal carcinoma [Unknown]
  - Renal cancer stage III [Unknown]
  - Lung carcinoma cell type unspecified stage IV [Unknown]
  - Renal cancer stage IV [Not Recovered/Not Resolved]
  - Spinal cord neoplasm [Not Recovered/Not Resolved]

NARRATIVE: CASE EVENT DATE: 20130201
